FAERS Safety Report 23988511 (Version 1)
Quarter: 2024Q2

REPORT INFORMATION
  Report Type: Spontaneous
  Country: US (occurrence: US)
  Receive Date: 20240619
  Receipt Date: 20240619
  Transmission Date: 20240716
  Serious: Yes (Hospitalization)
  Sender: FDA-Public Use
  Company Number: US-ABBVIE-5804332

PATIENT
  Age: 49 Year
  Sex: Female

DRUGS (1)
  1. DAPSONE [Suspect]
     Active Substance: DAPSONE
     Indication: Product used for unknown indication
     Route: 065

REACTIONS (9)
  - Hepatic enzyme increased [Unknown]
  - Urticaria [Unknown]
  - Pyrexia [Recovered/Resolved]
  - Neuropathy peripheral [Unknown]
  - Pyrexia [Unknown]
  - Decreased appetite [Unknown]
  - Inflammation [Unknown]
  - Asthenia [Unknown]
  - Neuralgia [Unknown]

NARRATIVE: CASE EVENT DATE: 20240301
